FAERS Safety Report 8525264 (Version 2)
Quarter: 2012Q4

REPORT INFORMATION
  Report Type: 
  Country: AU (occurrence: AU)
  Receive Date: 20120423
  Receipt Date: 20120907
  Transmission Date: 20130627
  Serious: Yes (Hospitalization, Other)
  Sender: FDA-Public Use
  Company Number: PHHY2012AU033159

PATIENT
  Sex: Female

DRUGS (2)
  1. AREDIA [Suspect]
     Indication: METASTASES TO BONE
     Dosage: 90 mg every 4 weeks
     Route: 042
     Dates: end: 201203
  2. AROMASIN [Concomitant]
     Indication: BREAST CANCER METASTATIC
     Dosage: 25 mg daily
     Route: 048

REACTIONS (3)
  - Femur fracture [Recovered/Resolved]
  - Stress fracture [Recovered/Resolved]
  - Pathological fracture [Recovered/Resolved]
